FAERS Safety Report 5430511-1 (Version None)
Quarter: 2007Q3

REPORT INFORMATION
  Report Type: 
  Country: None (occurrence: None)
  Receive Date: 20070830
  Receipt Date: 20070822
  Transmission Date: 20080115
  Serious: Yes (Other)
  Sender: FDA-Public Use
  Company Number: AU-JNJFOC-20070804821

PATIENT
  Sex: Female

DRUGS (2)
  1. REMICADE [Suspect]
  2. REMICADE [Suspect]
     Indication: CROHN'S DISEASE

REACTIONS (5)
  - CHEST DISCOMFORT [None]
  - DYSPNOEA [None]
  - HYPOTENSION [None]
  - HYPOXIA [None]
  - INFUSION RELATED REACTION [None]
